FAERS Safety Report 21641026 (Version 1)
Quarter: 2022Q4

REPORT INFORMATION
  Report Type: Spontaneous
  Country: PL (occurrence: PL)
  Receive Date: 20221125
  Receipt Date: 20221125
  Transmission Date: 20230112
  Serious: Yes (Hospitalization)
  Sender: FDA-Public Use
  Company Number: PL-VA000000599-2022001458

PATIENT
  Age: 30 Year
  Sex: Female

DRUGS (4)
  1. ACETAMINOPHEN [Suspect]
     Active Substance: ACETAMINOPHEN
     Indication: Neck pain
     Dosage: UNK
     Route: 048
  2. ACETAMINOPHEN [Suspect]
     Active Substance: ACETAMINOPHEN
     Indication: Post-traumatic pain
  3. ETOFENAMATE [Concomitant]
     Active Substance: ETOFENAMATE
     Indication: Neck pain
     Dosage: UNK(AREA OF THE NECK)
     Route: 061
  4. ETOFENAMATE [Concomitant]
     Active Substance: ETOFENAMATE
     Indication: Post-traumatic pain

REACTIONS (1)
  - Symmetrical drug-related intertriginous and flexural exanthema [Recovering/Resolving]
